FAERS Safety Report 16233487 (Version 1)
Quarter: 2019Q2

REPORT INFORMATION
  Report Type: Spontaneous
  Country: GB (occurrence: GB)
  Receive Date: 20190424
  Receipt Date: 20190424
  Transmission Date: 20190711
  Serious: Yes (Other)
  Sender: FDA-Public Use
  Company Number: GB-HIKMA PHARMACEUTICALS USA INC.-GB-H14001-19-02623

PATIENT
  Age: 16 Year

DRUGS (1)
  1. VANCOMYCIN [Suspect]
     Active Substance: VANCOMYCIN
     Indication: PRODUCT USED FOR UNKNOWN INDICATION
     Dosage: NEAT BOLUS
     Route: 040

REACTIONS (3)
  - Malaise [Unknown]
  - Incorrect drug administration rate [Unknown]
  - Pallor [Unknown]

NARRATIVE: CASE EVENT DATE: 20181125
